FAERS Safety Report 9670354 (Version 1)
Quarter: 2013Q4

REPORT INFORMATION
  Report Type: Spontaneous
  Country: AR (occurrence: None)
  Receive Date: 20131104
  Receipt Date: 20131104
  Transmission Date: 20140711
  Serious: Yes (Death)
  Sender: FDA-Public Use
  Company Number: 2013P1020534

PATIENT
  Sex: 0

DRUGS (2)
  1. ASPIRIN [Suspect]
  2. ACENOCOUMAROL [Suspect]

REACTIONS (1)
  - Gastrointestinal haemorrhage [None]
